FAERS Safety Report 8825435 (Version 2)
Quarter: 2012Q4

REPORT INFORMATION
  Report Type: 
  Country: US (occurrence: US)
  Receive Date: 20121004
  Receipt Date: 20121031
  Transmission Date: 20130627
  Serious: Yes (Other)
  Sender: FDA-Public Use
  Company Number: US-ROCHE-1130990

PATIENT
  Sex: Female

DRUGS (3)
  1. RITUXAN [Suspect]
     Indication: LYMPHOMA
     Route: 065
     Dates: start: 20000727
  2. PROZAC [Concomitant]
  3. SONATA [Concomitant]

REACTIONS (11)
  - Paraesthesia [Unknown]
  - Hypoaesthesia [Unknown]
  - Axillary pain [Recovered/Resolved]
  - Anxiety [Recovered/Resolved]
  - Depression [Recovered/Resolved]
  - Tremor [Unknown]
  - Decreased appetite [Unknown]
  - Dehydration [Unknown]
  - Dizziness [Unknown]
  - Diarrhoea [Recovered/Resolved]
  - Malaise [Unknown]
